FAERS Safety Report 4698495-1 (Version None)
Quarter: 2005Q2

REPORT INFORMATION
  Report Type: 
  Country: None (occurrence: None)
  Receive Date: 20050621
  Receipt Date: 20050608
  Transmission Date: 20051028
  Serious: Yes (Hospitalization)
  Sender: FDA-Public Use
  Company Number: US_0506118586

PATIENT
  Sex: Female

DRUGS (1)
  1. OLANZAPINE [Suspect]
     Indication: SCHIZOPHRENIA
     Dosage: 10 MG/1 DAY
     Dates: start: 20020101, end: 20050201

REACTIONS (2)
  - APLASIA [None]
  - TREATMENT NONCOMPLIANCE [None]
